FAERS Safety Report 25724765 (Version 2)
Quarter: 2025Q3

REPORT INFORMATION
  Report Type: Spontaneous
  Country: US (occurrence: US)
  Receive Date: 20250826
  Receipt Date: 20250909
  Transmission Date: 20251021
  Serious: Yes (Other)
  Sender: TEVA
  Company Number: US-TEVA-VS-3364396

PATIENT
  Age: 64 Year
  Sex: Female

DRUGS (5)
  1. PREDNISONE [Suspect]
     Active Substance: PREDNISONE
     Indication: Cough
     Route: 065
  2. AZITHROMYCIN [Suspect]
     Active Substance: AZITHROMYCIN
     Indication: Cough
     Route: 065
  3. TOFACITINIB [Suspect]
     Active Substance: TOFACITINIB
     Indication: Psoriatic arthropathy
     Route: 065
  4. GUAIFENESIN [Suspect]
     Active Substance: GUAIFENESIN
     Indication: Cough
     Route: 065
  5. UPADACITINIB [Suspect]
     Active Substance: UPADACITINIB
     Indication: Psoriatic arthropathy
     Route: 065

REACTIONS (2)
  - Obstructive airways disorder [Unknown]
  - Drug ineffective [Unknown]
